FAERS Safety Report 6315135-6 (Version None)
Quarter: 2009Q3

REPORT INFORMATION
  Report Type: 
  Country: None (occurrence: None)
  Receive Date: 20090818
  Receipt Date: 20090818
  Transmission Date: 20100115
  Serious: Yes (Other)
  Sender: FDA-Public Use
  Company Number: None

PATIENT
  Age: 52 Year
  Sex: Male
  Weight: 86.1834 kg

DRUGS (1)
  1. PROAIR HFA [Suspect]
     Indication: ASTHMA
     Dosage: 2 PUFFS AS NEEDED INHAL
     Route: 055
     Dates: start: 20090710, end: 20090817

REACTIONS (4)
  - DEVICE MALFUNCTION [None]
  - DEVICE OCCLUSION [None]
  - DRUG INEFFECTIVE [None]
  - INCORRECT DRUG DOSAGE FORM ADMINISTERED [None]
